FAERS Safety Report 16027906 (Version 1)
Quarter: 2019Q1

REPORT INFORMATION
  Report Type: Spontaneous
  Country: US (occurrence: US)
  Receive Date: 20190304
  Receipt Date: 20190304
  Transmission Date: 20190418
  Serious: No
  Sender: FDA-Public Use
  Company Number: US-IMPAX LABORATORIES, LLC-2018-IPXL-00999

PATIENT
  Age: 65 Year
  Sex: Female

DRUGS (3)
  1. RYTARY [Suspect]
     Active Substance: CARBIDOPA\LEVODOPA
     Indication: PARKINSON^S DISEASE
     Dosage: 3 DF, QID (36.25 MG/145 MG, 3 CAPSULES BY MOUTH 4 TIMES DAILY)
     Route: 048
  2. RYTARY [Suspect]
     Active Substance: CARBIDOPA\LEVODOPA
     Dosage: 2 DF, 5 /DAY ( 48.75 MG/ 195 MG, 2 CAPSULES BY MOUTH 5 TIMES DAILY)
     Route: 048
  3. ROPINIROLE. [Concomitant]
     Active Substance: ROPINIROLE
     Indication: PARKINSON^S DISEASE
     Dosage: UNK
     Route: 048

REACTIONS (2)
  - Drug effect delayed [Not Recovered/Not Resolved]
  - Drug effect variable [Not Recovered/Not Resolved]
